FAERS Safety Report 23878343 (Version 1)
Quarter: 2024Q2

REPORT INFORMATION
  Report Type: Spontaneous
  Country: CN (occurrence: CN)
  Receive Date: 20240521
  Receipt Date: 20240521
  Transmission Date: 20240716
  Serious: No
  Sender: FDA-Public Use
  Company Number: CN-ABBVIE-5767658

PATIENT

DRUGS (2)
  1. PRED FORTE [Suspect]
     Active Substance: PREDNISOLONE ACETATE
     Indication: Product used for unknown indication
     Dosage: DOSAGE FORM: BOTTLE
     Route: 047
  2. PRED FORTE [Suspect]
     Active Substance: PREDNISOLONE ACETATE
     Dosage: DOSAGE FORM: BOTTLE
     Route: 047

REACTIONS (3)
  - Foreign body sensation in eyes [Unknown]
  - Eye discharge [Unknown]
  - Foreign body in eye [Unknown]
